FAERS Safety Report 9091391 (Version 2)
Quarter: 2013Q3

REPORT INFORMATION
  Report Type: Spontaneous
  Country: IE (occurrence: IE)
  Receive Date: 20130201
  Receipt Date: 20130809
  Transmission Date: 20140515
  Serious: No
  Sender: FDA-Public Use
  Company Number: IE-ASTRAZENECA-2013SE06614

PATIENT
  Age: 2 Month
  Sex: Female
  Weight: 1.2 kg

DRUGS (3)
  1. SYNAGIS [Suspect]
     Route: 030
  2. VITAMIN D [Concomitant]
  3. FERINSOL [Concomitant]

REACTIONS (1)
  - Viral upper respiratory tract infection [Recovered/Resolved]
